FAERS Safety Report 25498049 (Version 1)
Quarter: 2025Q3

REPORT INFORMATION
  Report Type: Spontaneous
  Country: CN (occurrence: CN)
  Receive Date: 20250701
  Receipt Date: 20250701
  Transmission Date: 20251021
  Serious: Yes (Life-Threatening, Hospitalization, Other)
  Sender: Kenvue
  Company Number: CN-KENVUE-20250610824

PATIENT

DRUGS (6)
  1. ACETAMINOPHEN [Suspect]
     Active Substance: ACETAMINOPHEN
     Indication: Pyrexia
     Dosage: 8 MILLILITER, THRICE A DAY
     Route: 048
     Dates: start: 20250612
  2. LORATADINE [Suspect]
     Active Substance: LORATADINE
     Indication: Rash erythematous
     Route: 065
     Dates: start: 20250609
  3. LORATADINE [Suspect]
     Active Substance: LORATADINE
     Indication: Pruritus
  4. CHILDRENS MOTRIN [Suspect]
     Active Substance: IBUPROFEN
     Indication: Pyrexia
     Dosage: 8 MILLILITER, THRICE A DAY
     Route: 048
     Dates: start: 20250610
  5. ACETAMINOPHEN\BOS TAURUS GALLSTONE\CHLORPHENIRAMINE MALEATE [Suspect]
     Active Substance: ACETAMINOPHEN\BOS TAURUS GALLSTONE\CHLORPHENIRAMINE MALEATE
     Indication: Pyrexia
     Dosage: 1.5 DOSAGE FORM (SACHET), THRICE A DAY
     Route: 048
     Dates: start: 20250609
  6. AMBROXOL HYDROCHLORIDE\CLENBUTEROL [Suspect]
     Active Substance: AMBROXOL HYDROCHLORIDE\CLENBUTEROL
     Indication: Pyrexia
     Route: 065
     Dates: start: 20250609

REACTIONS (2)
  - Off label use [Unknown]
  - Toxic epidermal necrolysis [Recovering/Resolving]

NARRATIVE: CASE EVENT DATE: 20250609
